FAERS Safety Report 10013104 (Version 2)
Quarter: 2014Q1

REPORT INFORMATION
  Report Type: Spontaneous
  Country: IL (occurrence: IL)
  Receive Date: 20140314
  Receipt Date: 20140321
  Transmission Date: 20141002
  Serious: Yes (Disabling, Other)
  Sender: FDA-Public Use
  Company Number: IL-B.I. PHARMACEUTICALS,INC./RIDGEFIELD-2014-BI-10584RI

PATIENT
  Age: 80 Year
  Sex: Male
  Weight: 110 kg

DRUGS (5)
  1. PRADAXA [Suspect]
     Indication: ATRIAL FIBRILLATION
     Dosage: 220 MG
     Route: 065
     Dates: end: 20140308
  2. FUSID (FRUSEMIDE) [Concomitant]
     Route: 065
  3. GLUCOMIN (METFORMIN) [Concomitant]
     Route: 065
  4. SIMVACOR (SIMVASTATIN) [Concomitant]
     Route: 065
  5. VASODIP (LERCANIDIPINE) [Concomitant]
     Route: 065

REACTIONS (1)
  - Cerebrovascular accident [Recovered/Resolved with Sequelae]
